FAERS Safety Report 4411243-5 (Version None)
Quarter: 2004Q2

REPORT INFORMATION
  Report Type: 
  Country: None (occurrence: None)
  Receive Date: 20040630
  Receipt Date: 20040518
  Transmission Date: 20050107
  Serious: No
  Sender: FDA-Public Use
  Company Number: 04P-163-0261108-00

PATIENT
  Age: 54 Year
  Sex: Female
  Weight: 86.1834 kg

DRUGS (8)
  1. HUMIRA [Suspect]
     Indication: RHEUMATOID ARTHRITIS
     Dosage: 40 MG, 1 IN 2 WK, SUBCUTANEOUS
     Route: 058
     Dates: start: 20040322
  2. LEXAPRO [Concomitant]
  3. HYDROXYCHLOROQUINE SULFATE [Concomitant]
  4. LISINOPRIL [Concomitant]
  5. PREDNISONE [Concomitant]
  6. MONTELUKAST SODIUM [Concomitant]
  7. GEMFIBROZIL [Concomitant]
  8. TRAMADOL HCL [Concomitant]

REACTIONS (3)
  - INJECTION SITE HAEMORRHAGE [None]
  - INJECTION SITE STINGING [None]
  - INJECTION SITE URTICARIA [None]
